FAERS Safety Report 16980916 (Version 10)
Quarter: 2019Q4

REPORT INFORMATION
  Report Type: Report from Study
  Country: FR (occurrence: FR)
  Receive Date: 20191031
  Receipt Date: 20191125
  Transmission Date: 20200122
  Serious: Yes (Hospitalization, Other)
  Sender: FDA-Public Use
  Company Number: FR-EISAI MEDICAL RESEARCH-EC-2019-064437

PATIENT
  Age: 88 Year
  Sex: Female
  Weight: 64 kg

DRUGS (14)
  1. LASILIX [Concomitant]
     Active Substance: FUROSEMIDE
     Dates: start: 200101
  2. PLACEBO [Suspect]
     Active Substance: UNSPECIFIED INGREDIENT
     Route: 041
     Dates: start: 20191015, end: 20191015
  3. LANTUS [Concomitant]
     Active Substance: INSULIN GLARGINE
     Dates: start: 199901
  4. JANUVIA [Concomitant]
     Active Substance: SITAGLIPTIN PHOSPHATE
     Dates: start: 199901
  5. BIPRETERAX [Concomitant]
     Active Substance: INDAPAMIDE\PERINDOPRIL
     Dates: start: 20190930
  6. LOXEN [Concomitant]
     Dates: start: 20190930
  7. LENVATINIB [Suspect]
     Active Substance: LENVATINIB
     Route: 048
     Dates: start: 20191022, end: 20191022
  8. PLACEBO [Suspect]
     Active Substance: UNSPECIFIED INGREDIENT
     Indication: HEPATOCELLULAR CARCINOMA
     Route: 041
     Dates: start: 20190924, end: 20190924
  9. LENVATINIB [Suspect]
     Active Substance: LENVATINIB
     Indication: HEPATOCELLULAR CARCINOMA
     Dosage: STARTING DOSE: 12 MG; FLUCTUATED DOSAGE
     Route: 048
     Dates: start: 20190924, end: 20191021
  10. INNOHEP [Concomitant]
     Active Substance: TINZAPARIN SODIUM
     Dates: start: 20190904, end: 20191025
  11. HEMIGOXINE NATIVELLE [Concomitant]
     Active Substance: DIGOXIN
     Dates: start: 200101
  12. INEXIUM [Concomitant]
     Active Substance: ESOMEPRAZOLE
     Dates: start: 20190114
  13. PAROXETINE. [Concomitant]
     Active Substance: PAROXETINE
     Dates: start: 199501
  14. STAGID [Concomitant]
     Active Substance: METFORMIN PAMOATE
     Dates: start: 199901

REACTIONS (2)
  - Hepatic encephalopathy [Recovered/Resolved]
  - Abdominal pain [Recovered/Resolved]

NARRATIVE: CASE EVENT DATE: 20191025
